FAERS Safety Report 7941064-8 (Version None)
Quarter: 2011Q4

REPORT INFORMATION
  Report Type: 
  Country: None (occurrence: None)
  Receive Date: 20111114
  Receipt Date: 20110817
  Transmission Date: 20120403
  Serious: Yes (Other)
  Sender: FDA-Public Use
  Company Number: 2011S1000533

PATIENT

DRUGS (3)
  1. CUBICIN [Suspect]
     Indication: STAPHYLOCOCCAL OSTEOMYELITIS
     Dosage: 6 MG/KG;QD;IV
     Route: 042
  2. CUBICIN [Suspect]
     Indication: SPINAL COLUMN STENOSIS
     Dosage: 6 MG/KG;QD;IV
     Route: 042
  3. CUBICIN [Suspect]
     Indication: INTERVERTEBRAL DISCITIS
     Dosage: 6 MG/KG;QD;IV
     Route: 042

REACTIONS (1)
  - EXTRADURAL ABSCESS [None]
